FAERS Safety Report 12359762 (Version 1)
Quarter: 2016Q2

REPORT INFORMATION
  Report Type: Spontaneous
  Country: US (occurrence: US)
  Receive Date: 20160512
  Receipt Date: 20160512
  Transmission Date: 20160815
  Serious: No
  Sender: FDA-Public Use
  Company Number: US-GLAXOSMITHKLINE-US2016063868

PATIENT
  Sex: Male

DRUGS (1)
  1. ABREVA [Suspect]
     Active Substance: DOCOSANOL
     Indication: ORAL HERPES
     Dosage: UNK
     Dates: start: 20160502, end: 20160504

REACTIONS (3)
  - Condition aggravated [Not Recovered/Not Resolved]
  - Oral herpes [Not Recovered/Not Resolved]
  - Inappropriate schedule of drug administration [Unknown]

NARRATIVE: CASE EVENT DATE: 20160504
